FAERS Safety Report 12221131 (Version 2)
Quarter: 2018Q2

REPORT INFORMATION
  Report Type: Spontaneous
  Country: US (occurrence: US)
  Receive Date: 20160330
  Receipt Date: 20180403
  Transmission Date: 20180711
  Serious: No
  Sender: FDA-Public Use
  Company Number: US-SA-2016SA041007

PATIENT
  Age: 73 Year
  Sex: Female

DRUGS (1)
  1. CHILDREN^S ALLERGY, ORALLY DISINTEGRATING TABLETS [Suspect]
     Active Substance: FEXOFENADINE HYDROCHLORIDE
     Indication: MULTIPLE ALLERGIES
     Dosage: 2 OR 3 TIMES A WEEK
     Route: 065

REACTIONS (3)
  - Pruritus [Unknown]
  - Product taste abnormal [Unknown]
  - Underdose [Unknown]
